FAERS Safety Report 16166070 (Version 2)
Quarter: 2019Q3

REPORT INFORMATION
  Report Type: Report from Study
  Country: US (occurrence: US)
  Receive Date: 20190406
  Receipt Date: 20190704
  Transmission Date: 20191004
  Serious: Yes (Hospitalization)
  Sender: FDA-Public Use
  Company Number: US-009507513-1904USA001580

PATIENT
  Sex: Female

DRUGS (1)
  1. NOXAFIL [Suspect]
     Active Substance: POSACONAZOLE
     Dosage: PRODUCT: NOXAFIL, SUSTAINED ACTION, DOSE/FREQUENCY: 1 TABLET THREE TIMES DAILY, ROUTE OF ADMINISTRAT
     Route: 048

REACTIONS (1)
  - Adverse event [Not Recovered/Not Resolved]
